FAERS Safety Report 24583081 (Version 1)
Quarter: 2024Q4

REPORT INFORMATION
  Report Type: Spontaneous
  Country: BE (occurrence: BE)
  Receive Date: 20241106
  Receipt Date: 20241106
  Transmission Date: 20250115
  Serious: No
  Sender: ALKEM
  Company Number: BE-ALKEM LABORATORIES LIMITED-BE-ALKEM-2024-23024

PATIENT
  Age: 65 Year
  Sex: Female

DRUGS (11)
  1. APREMILAST [Suspect]
     Active Substance: APREMILAST
     Indication: Spondylitis
     Dosage: 30 MILLIGRAM, BID (2X 30 MG/D)
     Route: 065
  2. COLCHICINE [Suspect]
     Active Substance: COLCHICINE
     Indication: Pyoderma gangrenosum
     Dosage: 2 MG/DAY
     Route: 065
  3. MINOCYCLINE [Suspect]
     Active Substance: MINOCYCLINE HYDROCHLORIDE
     Indication: Pyoderma gangrenosum
     Dosage: 200 MILLIGRAM, QD (200 MG/D)
     Route: 065
  4. TACROLIMUS [Suspect]
     Active Substance: TACROLIMUS
     Indication: Pyoderma gangrenosum
     Dosage: UNK
     Route: 065
  5. AZITHROMYCIN [Suspect]
     Active Substance: AZITHROMYCIN
     Indication: Pyoderma gangrenosum
     Dosage: 1500 MILLIGRAM, ONCE WEEKLY (3 X 500/WEEK)
     Route: 065
  6. METHYLPREDNISOLONE [Suspect]
     Active Substance: METHYLPREDNISOLONE
     Indication: Pyoderma gangrenosum
     Dosage: 32 MG/DAY
     Route: 065
  7. METHYLPREDNISOLONE [Suspect]
     Active Substance: METHYLPREDNISOLONE
     Dosage: UNK (TAPERING DOSE)
     Route: 065
  8. DOXYCYCLINE [Suspect]
     Active Substance: DOXYCYCLINE
     Indication: Pyoderma gangrenosum
     Dosage: 200 MG/DAY
     Route: 065
  9. INFLIXIMAB [Suspect]
     Active Substance: INFLIXIMAB
     Indication: Pyoderma gangrenosum
     Dosage: 5 MILLIGRAM/KILOGRAM (8 WEEKS)
     Route: 065
  10. METHOTREXATE [Suspect]
     Active Substance: METHOTREXATE
     Indication: Pyoderma gangrenosum
     Dosage: 15 MILLIGRAM, ONCE WEEKLY
     Route: 065
  11. SECUKINUMAB [Suspect]
     Active Substance: SECUKINUMAB
     Indication: Spondylitis
     Dosage: 150 MILLIGRAM (4 WEEKS)
     Route: 065

REACTIONS (2)
  - Adverse drug reaction [Unknown]
  - Therapy partial responder [Unknown]
